FAERS Safety Report 8510081-1 (Version None)
Quarter: 2012Q3

REPORT INFORMATION
  Report Type: 
  Country: None (occurrence: None)
  Receive Date: 20120713
  Receipt Date: 20120710
  Transmission Date: 20120928
  Serious: No
  Sender: FDA-Public Use
  Company Number: US-PFIZER INC-2012165515

PATIENT
  Sex: Female

DRUGS (2)
  1. LEVOXYL [Suspect]
     Dosage: 75 UG, UNK
  2. LEVOXYL [Suspect]
     Dosage: 50 UG, UNK

REACTIONS (2)
  - FEELING ABNORMAL [None]
  - HYPERSENSITIVITY [None]
